FAERS Safety Report 4541971-2 (Version None)
Quarter: 2004Q4

REPORT INFORMATION
  Report Type: 
  Country: None (occurrence: None)
  Receive Date: 20041227
  Receipt Date: 20041220
  Transmission Date: 20050328
  Serious: Yes (Death, Hospitalization)
  Sender: FDA-Public Use
  Company Number: 2004UW18681

PATIENT
  Age: 75 Year
  Sex: Female
  Weight: 81.1 kg

DRUGS (15)
  1. IRESSA [Suspect]
     Indication: PANCREATIC CARCINOMA
     Dosage: 250 MG QD PO
     Route: 049
     Dates: start: 20040802, end: 20040828
  2. XELODA [Suspect]
     Indication: PANCREATIC CARCINOMA
     Dosage: 825 MG/M2 Q12H
     Dates: start: 20040802, end: 20040828
  3. RADIATION [Suspect]
     Dates: start: 20040808, end: 20040827
  4. TUMS [Concomitant]
  5. MARINOL [Concomitant]
  6. IMODIUM ^JANSSEN^ [Concomitant]
  7. COMPAZINE [Concomitant]
  8. TYLENOL [Concomitant]
  9. OXYCODONE HCL [Concomitant]
  10. LORAZEPAM [Concomitant]
  11. ZOFRAN [Concomitant]
  12. ACTOS [Concomitant]
  13. INSULIN [Concomitant]
  14. LOMOTIL [Concomitant]
  15. PANCREASE [Concomitant]

REACTIONS (10)
  - ATRIAL FIBRILLATION [None]
  - COAGULOPATHY [None]
  - COUGH [None]
  - DEHYDRATION [None]
  - DIARRHOEA [None]
  - DISEASE PROGRESSION [None]
  - HYPOTENSION [None]
  - METASTASES TO LIVER [None]
  - NAUSEA [None]
  - VOMITING [None]
